FAERS Safety Report 4650834-3 (Version None)
Quarter: 2005Q2

REPORT INFORMATION
  Report Type: 
  Country: None (occurrence: None)
  Receive Date: 20050429
  Receipt Date: 20050429
  Transmission Date: 20051028
  Serious: Yes (Hospitalization)
  Sender: FDA-Public Use
  Company Number: None

PATIENT
  Age: 47 Year
  Sex: Female
  Weight: 96.1626 kg

DRUGS (3)
  1. XOLAIR [Suspect]
     Indication: PNEUMONIA VIRAL
     Dosage: 375 MG SUB Q Q 2 WKS
     Route: 058
     Dates: start: 20040329
  2. ADVAIR DISKUS 250/50 [Suspect]
     Indication: ASTHMA
     Dosage: 250/50MG PO BID
     Route: 048
     Dates: start: 20040413
  3. VANTIN [Concomitant]

REACTIONS (1)
  - ASTHMA [None]
